FAERS Safety Report 23141818 (Version 1)
Quarter: 2023Q4

REPORT INFORMATION
  Report Type: Spontaneous
  Country: US (occurrence: US)
  Receive Date: 20231103
  Receipt Date: 20231103
  Transmission Date: 20240110
  Serious: No
  Sender: FDA-Public Use
  Company Number: US-MYOVANT SCIENCES GMBH-2023MYSCI0900844

PATIENT
  Age: 65 Year
  Sex: Male

DRUGS (6)
  1. ORGOVYX [Suspect]
     Active Substance: RELUGOLIX
     Indication: Prostate cancer
     Dosage: UNK
     Route: 065
     Dates: end: 20230921
  2. METFORMIN [Concomitant]
     Active Substance: METFORMIN HYDROCHLORIDE
     Indication: Diabetes mellitus
     Dosage: 100 MILLIGRAM, QD
  3. LISINOPRIL [Concomitant]
     Active Substance: LISINOPRIL
     Indication: Renal disorder
     Dosage: 2.5 MILLIGRAM, QD
  4. TADALAFIL [Concomitant]
     Active Substance: TADALAFIL
     Indication: Prostate cancer
     Dosage: 5 MILLIGRAM, QD
  5. FIBER [Concomitant]
     Indication: Supplementation therapy
     Dosage: UNK, QD
  6. ATORVASTATIN [Concomitant]
     Active Substance: ATORVASTATIN
     Indication: Blood cholesterol abnormal
     Dosage: 40 MILLIGRAM, QD
     Route: 065

REACTIONS (1)
  - Therapy interrupted [Unknown]

NARRATIVE: CASE EVENT DATE: 20230922
